FAERS Safety Report 16522014 (Version 1)
Quarter: 2019Q3

REPORT INFORMATION
  Report Type: Spontaneous
  Country: CN (occurrence: CN)
  Receive Date: 20190702
  Receipt Date: 20190702
  Transmission Date: 20191004
  Serious: Yes (Other)
  Sender: FDA-Public Use
  Company Number: CN-JNJFOC-20190622091

PATIENT
  Sex: Female

DRUGS (1)
  1. TOPAMAX [Suspect]
     Active Substance: TOPIRAMATE
     Indication: PRODUCT USED FOR UNKNOWN INDICATION
     Dosage: 5 TABLETS OF 25 MG
     Route: 048
     Dates: start: 20190618

REACTIONS (4)
  - Monoplegia [Unknown]
  - Asthenia [Unknown]
  - Medication error [Unknown]
  - Dizziness [Unknown]

NARRATIVE: CASE EVENT DATE: 201906
